FAERS Safety Report 19476772 (Version 1)
Quarter: 2021Q2

REPORT INFORMATION
  Report Type: Spontaneous
  Country: US (occurrence: US)
  Receive Date: 20210629
  Receipt Date: 20210629
  Transmission Date: 20210717
  Serious: No
  Sender: FDA-Public Use
  Company Number: None

PATIENT
  Age: 66 Year
  Sex: Female
  Weight: 56.7 kg

DRUGS (1)
  1. ACTEMRA ACTPEN [Suspect]
     Active Substance: TOCILIZUMAB
     Indication: RHEUMATOID ARTHRITIS
     Dosage: AS DIRECTED??? HOLD
     Route: 058
     Dates: start: 202006

REACTIONS (4)
  - Bronchitis [None]
  - Pyrexia [None]
  - Sinusitis [None]
  - Therapy interrupted [None]
